FAERS Safety Report 9015305 (Version 1)
Quarter: 2013Q1

REPORT INFORMATION
  Report Type: Spontaneous
  Country: US (occurrence: US)
  Receive Date: 20130116
  Receipt Date: 20130116
  Transmission Date: 20140127
  Serious: Yes (Life-Threatening, Hospitalization)
  Sender: FDA-Public Use
  Company Number: US-BAYER-2013-003322

PATIENT
  Age: 27 Year
  Sex: Female
  Weight: 134.69 kg

DRUGS (11)
  1. YASMIN [Suspect]
  2. PERCOCET [Concomitant]
  3. COLACE [Concomitant]
  4. NAFCILLIN [Concomitant]
     Indication: URINARY TRACT INFECTION
  5. CIPRO [Concomitant]
     Indication: URINARY TRACT INFECTION
  6. CHROMOGEN [Concomitant]
     Indication: IRON DEFICIENCY ANAEMIA
  7. CALCIUM CARBONATE [Concomitant]
  8. PROTONIX [Concomitant]
  9. SENNA [Concomitant]
  10. OXYCONTIN [Concomitant]
     Indication: BACK PAIN
     Dosage: UNK UNK, PRN
  11. INSULIN [Concomitant]
     Indication: DIABETES MELLITUS

REACTIONS (1)
  - Pulmonary embolism [None]
